FAERS Safety Report 8365594-2 (Version None)
Quarter: 2012Q2

REPORT INFORMATION
  Report Type: 
  Country: None (occurrence: None)
  Receive Date: 20120516
  Receipt Date: 20120514
  Transmission Date: 20120825
  Serious: Yes (Hospitalization)
  Sender: FDA-Public Use
  Company Number: FR-MERCK-1205FRA00054

PATIENT
  Age: 72 Year
  Sex: Male

DRUGS (2)
  1. ZOCOR [Suspect]
     Route: 048
     Dates: end: 20081101
  2. AMIODARONE HYDROCHLORIDE [Concomitant]
     Route: 048

REACTIONS (1)
  - LUNG DISORDER [None]
